FAERS Safety Report 18820003 (Version 1)
Quarter: 2021Q1

REPORT INFORMATION
  Report Type: Spontaneous
  Country: JP (occurrence: JP)
  Receive Date: 20210202
  Receipt Date: 20210202
  Transmission Date: 20210419
  Serious: Yes (Hospitalization, Other)
  Sender: FDA-Public Use
  Company Number: JP-PBT-000433

PATIENT
  Age: 73 Year

DRUGS (3)
  1. METHOTREXATE. [Suspect]
     Active Substance: METHOTREXATE
     Indication: RHEUMATOID ARTHRITIS
     Route: 065
  2. TACROLIMUS. [Suspect]
     Active Substance: TACROLIMUS
     Indication: RHEUMATOID ARTHRITIS
     Route: 065
  3. PREDNISOLONE. [Suspect]
     Active Substance: PREDNISOLONE
     Indication: RHEUMATOID ARTHRITIS
     Route: 065

REACTIONS (4)
  - Autoimmune lymphoproliferative syndrome [Recovered/Resolved]
  - Epstein-Barr virus associated lymphoproliferative disorder [Recovered/Resolved]
  - Angioimmunoblastic T-cell lymphoma [Recovered/Resolved]
  - Product use in unapproved indication [Unknown]
